FAERS Safety Report 7500884-4 (Version None)
Quarter: 2011Q2

REPORT INFORMATION
  Report Type: 
  Country: None (occurrence: None)
  Receive Date: 20110524
  Receipt Date: 20110427
  Transmission Date: 20111010
  Serious: Yes (Disabling)
  Sender: FDA-Public Use
  Company Number: B0716144A

PATIENT
  Sex: Female
  Weight: 29.5 kg

DRUGS (6)
  1. ALKERAN [Suspect]
     Indication: CORD BLOOD TRANSPLANT THERAPY
     Dosage: 40MGM2 PER DAY
     Route: 042
     Dates: start: 20091126, end: 20091127
  2. KYTRIL [Concomitant]
     Dosage: 3MG PER DAY
     Route: 042
     Dates: start: 20091126, end: 20091129
  3. CYCLOSPORINE [Concomitant]
     Indication: IMMUNOSUPPRESSION
     Dosage: 44MG PER DAY
     Route: 065
     Dates: start: 20091130
  4. METHOTREXATE [Concomitant]
     Indication: IMMUNOSUPPRESSION
     Dosage: 10MGM2 PER DAY
     Route: 065
     Dates: start: 20091202, end: 20091207
  5. VICCLOX [Concomitant]
     Dosage: 150MG PER DAY
     Route: 042
     Dates: start: 20091126, end: 20091225
  6. FLUDARABINE PHOSPHATE [Suspect]
     Indication: CORD BLOOD TRANSPLANT THERAPY
     Dosage: 25MGM2 PER DAY
     Route: 042
     Dates: start: 20091125, end: 20091129

REACTIONS (4)
  - ASPARTATE AMINOTRANSFERASE INCREASED [None]
  - ALANINE AMINOTRANSFERASE INCREASED [None]
  - PYREXIA [None]
  - C-REACTIVE PROTEIN INCREASED [None]
